FAERS Safety Report 20961425 (Version 1)
Quarter: 2022Q2

REPORT INFORMATION
  Report Type: Spontaneous
  Country: CN (occurrence: CN)
  Receive Date: 20220615
  Receipt Date: 20220615
  Transmission Date: 20220721
  Serious: Yes (Other)
  Sender: FDA-Public Use
  Company Number: None

PATIENT
  Age: 18 Year
  Sex: Female

DRUGS (6)
  1. LINEZOLID [Suspect]
     Active Substance: LINEZOLID
     Indication: Intestinal obstruction
     Dosage: 600 MILLIGRAM, EVERY 1 DAY
     Route: 042
     Dates: start: 20170301, end: 201703
  2. LINEZOLID [Suspect]
     Active Substance: LINEZOLID
     Dosage: 300 MILLIGRAM, EVERY 1 DAY
     Route: 042
     Dates: start: 20170408
  3. ISONIAZID [Suspect]
     Active Substance: ISONIAZID
     Indication: Tuberculosis
     Dosage: 300 MILLIGRAM, QD
     Route: 048
     Dates: start: 2015
  4. RIFAMPIN [Suspect]
     Active Substance: RIFAMPIN
     Indication: Tuberculosis
     Dosage: 450 MILLIGRAM, QD
     Route: 048
     Dates: start: 2015
  5. CAPREOMYCIN [Concomitant]
     Active Substance: CAPREOMYCIN
     Indication: Intestinal obstruction
     Dosage: 750 MILLIGRAM, EVERY 1 DAY
     Route: 042
     Dates: start: 20170301
  6. MOXIFLOXACIN [Concomitant]
     Active Substance: MOXIFLOXACIN
     Indication: Intestinal obstruction
     Dosage: 400 MILLIGRAM, EVERY 1 DAY
     Route: 042
     Dates: start: 20170301

REACTIONS (2)
  - Drug resistance [Unknown]
  - Platelet count decreased [Unknown]
